FAERS Safety Report 5753276-2 (Version None)
Quarter: 2008Q2

REPORT INFORMATION
  Report Type: 
  Country: None (occurrence: None)
  Receive Date: 20080530
  Receipt Date: 20071108
  Transmission Date: 20081010
  Serious: No
  Sender: FDA-Public Use
  Company Number: A0692951A

PATIENT
  Age: 52 Year
  Sex: Male

DRUGS (3)
  1. VENTOLIN [Suspect]
     Indication: DRUG USE FOR UNKNOWN INDICATION
     Dosage: 2PUFF FOUR TIMES PER DAY
     Route: 055
     Dates: start: 20071105, end: 20071106
  2. COUGH MEDICINE [Concomitant]
  3. UNSPECIFIED MEDICATION [Concomitant]

REACTIONS (3)
  - COUGH [None]
  - DRUG INEFFECTIVE [None]
  - PHARMACEUTICAL PRODUCT COMPLAINT [None]
